FAERS Safety Report 5699389-5 (Version None)
Quarter: 2008Q2

REPORT INFORMATION
  Report Type: 
  Country: None (occurrence: None)
  Receive Date: 20080407
  Receipt Date: 20080401
  Transmission Date: 20081010
  Serious: Yes (Disabling)
  Sender: FDA-Public Use
  Company Number: WAES 0801USA00431

PATIENT
  Age: 54 Year
  Sex: Female
  Weight: 45.8133 kg

DRUGS (14)
  1. CAP VORINOSTAT UNK [Suspect]
     Indication: MYELODYSPLASTIC SYNDROME
     Dosage: 200 MG/TID/PO, 200 MG/TID/PO, 200 MG/TID/PO, 200 MG/TID/PO
     Route: 048
     Dates: start: 20071106, end: 20071112
  2. CAP VORINOSTAT UNK [Suspect]
     Indication: MYELODYSPLASTIC SYNDROME
     Dosage: 200 MG/TID/PO, 200 MG/TID/PO, 200 MG/TID/PO, 200 MG/TID/PO
     Route: 048
     Dates: start: 20071115, end: 20071119
  3. CAP VORINOSTAT UNK [Suspect]
     Indication: MYELODYSPLASTIC SYNDROME
     Dosage: 200 MG/TID/PO, 200 MG/TID/PO, 200 MG/TID/PO, 200 MG/TID/PO
     Route: 048
     Dates: start: 20071204, end: 20071217
  4. CAP VORINOSTAT UNK [Suspect]
     Indication: MYELODYSPLASTIC SYNDROME
     Dosage: 200 MG/TID/PO, 200 MG/TID/PO, 200 MG/TID/PO, 200 MG/TID/PO
     Route: 048
     Dates: start: 20071225, end: 20071231
  5. BENADRYL [Concomitant]
  6. COMPAZINE [Concomitant]
  7. TYLENOL (CAPLET) [Concomitant]
  8. CEPHALEXIN [Concomitant]
  9. MAGNESIA [MILK OF] [Concomitant]
  10. NYSTATIN [Concomitant]
  11. NYSTATIN [Concomitant]
  12. ONDANSETRON [Concomitant]
  13. OXYCODONE HCL [Concomitant]
  14. VALACYCLOVIR HYDROCHLORIDE [Concomitant]

REACTIONS (5)
  - FALL [None]
  - GAIT DISTURBANCE [None]
  - HAEMOGLOBIN DECREASED [None]
  - HYPOAESTHESIA [None]
  - NEUROPATHY PERIPHERAL [None]
